FAERS Safety Report 9012004 (Version 1)
Quarter: 2013Q1

REPORT INFORMATION
  Report Type: Spontaneous
  Country: US (occurrence: US)
  Receive Date: 20130114
  Receipt Date: 20130114
  Transmission Date: 20140127
  Serious: Yes (Hospitalization)
  Sender: FDA-Public Use
  Company Number: US-ELI_LILLY_AND_COMPANY-US201301001313

PATIENT
  Sex: Female

DRUGS (12)
  1. FORTEO [Suspect]
     Indication: OSTEOPOROSIS
     Dosage: 20 UG, QD
     Dates: start: 201209
  2. FORTEO [Suspect]
     Dosage: UNK
     Dates: start: 201209
  3. SIMVASTATIN [Concomitant]
     Dosage: 20 MG, UNK
  4. AVALIDE [Concomitant]
     Dosage: 12.5 MG, UNK
  5. OMEPRAZOLE [Concomitant]
     Dosage: 20 MG, QD
  6. CREON [Concomitant]
     Indication: DYSPEPSIA
     Dosage: 48000 U, QID
  7. TYLENOL                                 /SCH/ [Concomitant]
     Dosage: UNK, PRN
  8. FISH OIL [Concomitant]
     Dosage: 1000 MG, UNK
  9. CALCIUM [Concomitant]
     Dosage: 1200 MG, QD
  10. VITAMIN D3 [Concomitant]
     Dosage: UNK, QD
  11. B12 [Concomitant]
     Dosage: 1000 MG, QD
  12. PROBIOTICS [Concomitant]
     Dosage: 100 MG, QD

REACTIONS (13)
  - Bile duct obstruction [Unknown]
  - Pancreatitis [Unknown]
  - Blood magnesium decreased [Unknown]
  - Blood potassium decreased [Unknown]
  - Electrolyte imbalance [Unknown]
  - Asthenia [Unknown]
  - Dizziness [Unknown]
  - Musculoskeletal discomfort [Unknown]
  - Back pain [Unknown]
  - Arthralgia [Unknown]
  - Rash [Unknown]
  - Aortic disorder [Unknown]
  - Inflammation [Unknown]
